FAERS Safety Report 14514767 (Version 1)
Quarter: 2018Q1

REPORT INFORMATION
  Report Type: Spontaneous
  Country: US (occurrence: US)
  Receive Date: 20180209
  Receipt Date: 20180209
  Transmission Date: 20180509
  Serious: No
  Sender: FDA-Public Use
  Company Number: US-LUNDBECK-DKLU2040882

PATIENT
  Sex: Female

DRUGS (2)
  1. NORTHERA [Suspect]
     Active Substance: DROXIDOPA
     Indication: DIZZINESS
     Route: 048
     Dates: start: 20171107
  2. NORTHERA [Suspect]
     Active Substance: DROXIDOPA
     Dosage: SCHEDULE C/TITRATION COMPLETE
     Route: 048

REACTIONS (2)
  - Drug effect variable [Unknown]
  - Blood pressure fluctuation [Unknown]
